FAERS Safety Report 6651232-3 (Version None)
Quarter: 2010Q1

REPORT INFORMATION
  Report Type: 
  Country: None (occurrence: None)
  Receive Date: 20100322
  Receipt Date: 20100311
  Transmission Date: 20100710
  Serious: Yes (Congenital Anomaly)
  Sender: FDA-Public Use
  Company Number: 8012969

PATIENT

DRUGS (3)
  1. KEPPRA [Suspect]
     Indication: EPILEPSY
     Dosage: (2 G BID TRANSPLACENTAL)
     Route: 064
  2. GABAPENTIN [Suspect]
     Indication: EPILEPSY
     Dosage: (1200 MG, TRANSPLACENTAL)
     Route: 064
  3. LAMOTRIGINE [Suspect]
     Indication: EPILEPSY
     Dosage: (400 MG BID, TRANSPLACENTAL)
     Route: 064

REACTIONS (2)
  - MATERNAL DEATH AFFECTING FOETUS [None]
  - TALIPES [None]
